FAERS Safety Report 5393969-2 (Version None)
Quarter: 2007Q3

REPORT INFORMATION
  Report Type: 
  Country: None (occurrence: None)
  Receive Date: 20070723
  Receipt Date: 20061208
  Transmission Date: 20080115
  Serious: No
  Sender: FDA-Public Use
  Company Number: A0630933A

PATIENT
  Age: 83 Year
  Sex: Female

DRUGS (10)
  1. AVANDIA [Suspect]
     Indication: BLOOD GLUCOSE INCREASED
     Dosage: 4MG PER DAY
     Route: 048
     Dates: start: 20060517
  2. GLIPIZIDE [Concomitant]
  3. COREG [Concomitant]
  4. FUROSEMIDE [Concomitant]
  5. KLOR-CON [Concomitant]
  6. LANOXIN [Concomitant]
  7. DIOVAN [Concomitant]
  8. WARFARIN SODIUM [Concomitant]
  9. LIPITOR [Concomitant]
  10. FEXOFENADINE [Concomitant]

REACTIONS (1)
  - DRUG INEFFECTIVE [None]
